FAERS Safety Report 7238616-X (Version None)
Quarter: 2011Q1

REPORT INFORMATION
  Report Type: 
  Country: None (occurrence: None)
  Receive Date: 20110121
  Receipt Date: 20110118
  Transmission Date: 20110831
  Serious: Yes (Hospitalization, Other)
  Sender: FDA-Public Use
  Company Number: US-AMGEN-USASP2011003446

PATIENT

DRUGS (1)
  1. NPLATE [Suspect]
     Indication: IDIOPATHIC THROMBOCYTOPENIC PURPURA
     Dosage: 7 A?G/KG, UNK
     Dates: start: 20091210, end: 20101217

REACTIONS (5)
  - INFECTION [None]
  - TREATMENT NONCOMPLIANCE [None]
  - ANTIBODY TEST POSITIVE [None]
  - ANAEMIA HAEMOLYTIC AUTOIMMUNE [None]
  - COLD AGGLUTININS POSITIVE [None]
